FAERS Safety Report 11825954 (Version 2)
Quarter: 2015Q4

REPORT INFORMATION
  Report Type: Spontaneous
  Country: PE (occurrence: PE)
  Receive Date: 20151211
  Receipt Date: 20151231
  Transmission Date: 20160305
  Serious: Yes (Disabling)
  Sender: FDA-Public Use
  Company Number: PE-SA-2015SA197105

PATIENT
  Age: 76 Year
  Sex: Male

DRUGS (1)
  1. SELSUN [Suspect]
     Active Substance: SELENIUM SULFIDE
     Dosage: DOSE: 1 APPLICATION
     Route: 061
     Dates: start: 20151123, end: 20151123

REACTIONS (4)
  - Eye pain [Recovered/Resolved]
  - Corneal lesion [Recovered/Resolved]
  - Pruritus [Recovered/Resolved]
  - Eye pruritus [Recovered/Resolved]

NARRATIVE: CASE EVENT DATE: 20151123
